FAERS Safety Report 9858323 (Version 1)
Quarter: 2014Q1

REPORT INFORMATION
  Report Type: Spontaneous
  Country: US (occurrence: US)
  Receive Date: 20140131
  Receipt Date: 20140131
  Transmission Date: 20141002
  Serious: Yes (Other)
  Sender: FDA-Public Use
  Company Number: US-JNJFOC-20140112414

PATIENT
  Age: 48 Year
  Sex: Male
  Weight: 96.16 kg

DRUGS (3)
  1. LEVAQUIN [Suspect]
     Indication: DIVERTICULITIS
     Route: 048
     Dates: start: 20140108, end: 20140108
  2. NONSTEROIDAL ANTI-INFLAMMATORY DRUG NOS [Suspect]
     Indication: ARTHRALGIA
     Route: 065
     Dates: start: 201401, end: 201401
  3. MICARDIS [Concomitant]
     Indication: HYPERTENSION
     Route: 048
     Dates: start: 2006

REACTIONS (7)
  - Tendonitis [Unknown]
  - Abnormal loss of weight [Unknown]
  - Arthralgia [Not Recovered/Not Resolved]
  - Muscle spasms [Not Recovered/Not Resolved]
  - Drug prescribing error [Unknown]
  - Feeling abnormal [Not Recovered/Not Resolved]
  - Emotional distress [Unknown]
